FAERS Safety Report 5225252-X (Version None)
Quarter: 2007Q1

REPORT INFORMATION
  Report Type: 
  Country: None (occurrence: None)
  Receive Date: 20070131
  Receipt Date: 20070129
  Transmission Date: 20070707
  Serious: Yes (Other)
  Sender: FDA-Public Use
  Company Number: CN-SANOFI-SYNTHELABO-A01200700447

PATIENT
  Age: 33 Year
  Sex: Female

DRUGS (5)
  1. OUBEI [Concomitant]
     Indication: OVARIAN CANCER
     Route: 042
  2. ELOXATIN [Suspect]
     Indication: OVARIAN CANCER
     Route: 041
  3. ELOXATIN [Suspect]
     Indication: METASTASES TO PERITONEUM
     Route: 041
  4. FLUOROURACIL [Concomitant]
     Dosage: UNK
     Route: 065
  5. LEUCOVORIN CALCIUM [Concomitant]
     Dosage: UNK
     Route: 065

REACTIONS (1)
  - LARYNGOSPASM [None]
